FAERS Safety Report 23810136 (Version 1)
Quarter: 2024Q2

REPORT INFORMATION
  Report Type: Spontaneous
  Country: US (occurrence: None)
  Receive Date: 20240501
  Receipt Date: 20240501
  Transmission Date: 20240715
  Serious: No
  Sender: FDA-Public Use
  Company Number: None

PATIENT
  Age: 22 Year
  Sex: Female
  Weight: 128.7 kg

DRUGS (21)
  1. BUPRENORPHINE [Suspect]
     Active Substance: BUPRENORPHINE
     Indication: Drug use disorder
     Dosage: OTHER QUANTITY : 1 TABLET(S);?OTHER FREQUENCY : 2MG, 4MG, 4MG/DAY;?
     Route: 060
  2. BUPRENORPHINE [Suspect]
     Active Substance: BUPRENORPHINE
     Indication: Pain
  3. SUBOXONE [Suspect]
     Active Substance: BUPRENORPHINE HYDROCHLORIDE\NALOXONE HYDROCHLORIDE
  4. METHOTREXATE [Suspect]
     Active Substance: METHOTREXATE
  5. GABAPENTIN [Concomitant]
     Active Substance: GABAPENTIN
  6. DULOXETINE [Concomitant]
     Active Substance: DULOXETINE
  7. FLUOXETINE [Concomitant]
     Active Substance: FLUOXETINE HYDROCHLORIDE
  8. SULFASALAZINE [Concomitant]
     Active Substance: SULFASALAZINE
  9. CYCLOBENZAPRINE [Concomitant]
     Active Substance: CYCLOBENZAPRINE
  10. TRAZODONE [Concomitant]
     Active Substance: TRAZODONE HYDROCHLORIDE
  11. MEMANTINE [Concomitant]
     Active Substance: MEMANTINE
  12. MELOXICAM [Concomitant]
     Active Substance: MELOXICAM
  13. ATORVASTATIN [Concomitant]
     Active Substance: ATORVASTATIN
  14. METOPROLOL [Concomitant]
     Active Substance: METOPROLOL
  15. CLONIDINE [Concomitant]
     Active Substance: CLONIDINE
  16. METHOTREXATE [Concomitant]
     Active Substance: METHOTREXATE
  17. KEVZARA [Concomitant]
     Active Substance: SARILUMAB
  18. IMITREX [Concomitant]
     Active Substance: SUMATRIPTAN SUCCINATE
  19. ALBUTEROL [Concomitant]
     Active Substance: ALBUTEROL
  20. VITA FUSION WOMEN^S MULTIVITAMIN [Concomitant]
  21. FOLIC ACID [Concomitant]
     Active Substance: FOLIC ACID

REACTIONS (6)
  - Dental caries [None]
  - Endodontic procedure [None]
  - Tooth injury [None]
  - Tooth extraction [None]
  - Dental caries [None]
  - Frustration tolerance decreased [None]

NARRATIVE: CASE EVENT DATE: 20170101
